FAERS Safety Report 11071257 (Version 1)
Quarter: 2015Q2

REPORT INFORMATION
  Report Type: Spontaneous
  Country: US (occurrence: None)
  Receive Date: 20150424
  Receipt Date: 20150424
  Transmission Date: 20150821
  Serious: Yes (Death, Hospitalization)
  Sender: FDA-Public Use
  Company Number: US-ZYDUS-007813

PATIENT
  Age: 76 Year
  Sex: Male

DRUGS (1)
  1. DONEPEZIL (DONEPEZIL) [Suspect]
     Active Substance: DONEPEZIL
     Indication: OFF LABEL USE
     Dosage: 1.0DAYS

REACTIONS (5)
  - Hiccups [None]
  - Off label use [None]
  - Asthenia [None]
  - Abdominal pain upper [None]
  - Eructation [None]
